FAERS Safety Report 7402249-2 (Version None)
Quarter: 2011Q2

REPORT INFORMATION
  Report Type: 
  Country: None (occurrence: None)
  Receive Date: 20110408
  Receipt Date: 20110405
  Transmission Date: 20111010
  Serious: Yes (Hospitalization, Other)
  Sender: FDA-Public Use
  Company Number: US-PFIZER INC-2010143883

PATIENT
  Sex: Male

DRUGS (8)
  1. METHADONE [Concomitant]
     Dosage: UNK
     Dates: start: 20060101
  2. ZOFRAN [Concomitant]
     Indication: NAUSEA
     Dosage: UNK
     Dates: start: 20070401, end: 20091001
  3. CHANTIX [Suspect]
     Indication: SMOKING CESSATION THERAPY
     Dosage: STARTER AND CONTINUING PACK
     Dates: start: 20081001, end: 20090101
  4. TORADOL [Concomitant]
     Indication: PAIN
     Dosage: UNK
     Dates: start: 20060601, end: 20091001
  5. MOTRIN [Concomitant]
     Indication: PAIN
     Dosage: UNK
     Dates: start: 20060301, end: 20090501
  6. ZOFRAN [Concomitant]
     Indication: VOMITING
  7. PROMETHAZINE [Concomitant]
     Indication: NAUSEA
     Dosage: UNK
     Dates: start: 20040801, end: 20091001
  8. PROMETHAZINE [Concomitant]
     Indication: VOMITING

REACTIONS (9)
  - DEPRESSION [None]
  - ANXIETY [None]
  - MENTAL DISORDER [None]
  - HALLUCINATION, VISUAL [None]
  - INTENTIONAL OVERDOSE [None]
  - SOCIAL AVOIDANT BEHAVIOUR [None]
  - SUICIDE ATTEMPT [None]
  - LOSS OF CONSCIOUSNESS [None]
  - CONTUSION [None]
